FAERS Safety Report 7604224-1 (Version None)
Quarter: 2011Q3

REPORT INFORMATION
  Report Type: 
  Country: None (occurrence: None)
  Receive Date: 20110712
  Receipt Date: 20110706
  Transmission Date: 20111222
  Serious: Yes (Other)
  Sender: FDA-Public Use
  Company Number: US-GLAXOSMITHKLINE-A0935137A

PATIENT
  Age: 11 Year
  Sex: Female

DRUGS (3)
  1. SINGULAIR [Concomitant]
  2. XOPENEX [Concomitant]
  3. ADVAIR DISKUS 100/50 [Suspect]
     Indication: ASTHMA
     Dosage: 2PUFF TWICE PER DAY
     Route: 055
     Dates: start: 20110519, end: 20110527

REACTIONS (1)
  - CONVULSION [None]
